FAERS Safety Report 6930225-2 (Version None)
Quarter: 2010Q3

REPORT INFORMATION
  Report Type: 
  Country: None (occurrence: None)
  Receive Date: 20100818
  Receipt Date: 20100809
  Transmission Date: 20110219
  Serious: Yes (Hospitalization)
  Sender: FDA-Public Use
  Company Number: BR-ASTRAZENECA-2010SE34985

PATIENT
  Age: 32 Year
  Sex: Male

DRUGS (2)
  1. ATENOLOL [Suspect]
     Indication: AORTIC VALVE DISEASE
     Route: 048
     Dates: start: 20060101, end: 20090601
  2. SELOZOK [Suspect]
     Indication: PROPHYLAXIS
     Route: 048
     Dates: start: 20100601

REACTIONS (2)
  - PALPITATIONS [None]
  - PLATELET DISORDER [None]
